FAERS Safety Report 5353932-4 (Version None)
Quarter: 2007Q2

REPORT INFORMATION
  Report Type: 
  Country: None (occurrence: None)
  Receive Date: 20070608
  Receipt Date: 20070608
  Transmission Date: 20071010
  Serious: Yes (Hospitalization)
  Sender: FDA-Public Use
  Company Number: None

PATIENT
  Age: 64 Year
  Sex: Male

DRUGS (13)
  1. WARFARIN SODIUM [Suspect]
     Dosage: UNKNOWN PO
     Route: 048
  2. LISINOPRIL [Concomitant]
  3. HHDROCHLOROTHIAZIDE [Concomitant]
  4. NIFEDIPINE [Concomitant]
  5. LEVETIRACETAM [Concomitant]
  6. MAGNESIUM OXIDE [Concomitant]
  7. SIMVASTATIN [Concomitant]
  8. ZETIA [Concomitant]
  9. GLIPIZIDE [Concomitant]
  10. METOPROLOL SUCCINATE [Concomitant]
  11. BISACODYL [Concomitant]
  12. METFORMIN HCL [Concomitant]
  13. SS INSULIN [Concomitant]

REACTIONS (3)
  - CEREBRAL HAEMORRHAGE [None]
  - COAGULOPATHY [None]
  - ISCHAEMIC STROKE [None]
